FAERS Safety Report 11876917 (Version 3)
Quarter: 2016Q1

REPORT INFORMATION
  Report Type: Spontaneous
  Country: JP (occurrence: JP)
  Receive Date: 20151229
  Receipt Date: 20160202
  Transmission Date: 20160526
  Serious: Yes (Death)
  Sender: FDA-Public Use
  Company Number: JP-MALLINCKRODT-T201506076

PATIENT
  Age: 46 Year
  Sex: Female
  Weight: 42 kg

DRUGS (51)
  1. METHADONE [Suspect]
     Active Substance: METHADONE HYDROCHLORIDE
     Dosage: (115 MG DAILY DOSE)
     Route: 048
     Dates: start: 20150112, end: 20150119
  2. METHADONE [Suspect]
     Active Substance: METHADONE HYDROCHLORIDE
     Dosage: (190 MG DAILY DOSE)
     Route: 048
     Dates: start: 20150216, end: 20150511
  3. METHADONE [Suspect]
     Active Substance: METHADONE HYDROCHLORIDE
     Dosage: (235 MG DAILY DOSE)
     Route: 048
     Dates: start: 20150617, end: 20150620
  4. OXINORM [Concomitant]
     Active Substance: OXYCODONE HYDROCHLORIDE
     Indication: ANALGESIC THERAPY
     Dosage: 100 MG, PRN
     Route: 048
     Dates: start: 20141203
  5. FUROSEMIDE. [Concomitant]
     Active Substance: FUROSEMIDE
     Dosage: 40 MG, UNK
     Route: 048
     Dates: start: 20150221, end: 20150327
  6. DOMPERIDONE [Concomitant]
     Active Substance: DOMPERIDONE
     Dosage: 10 MG, UNK
     Route: 048
     Dates: start: 20150401, end: 20150414
  7. MAGMITT [Concomitant]
     Active Substance: MAGNESIUM OXIDE
     Dosage: 1500 MG, UNK
     Route: 048
     Dates: start: 20150414, end: 20150511
  8. MARCAIN [Concomitant]
     Active Substance: BUPIVACAINE HYDROCHLORIDE
     Dosage: 0.6 ML, UNK
     Route: 051
     Dates: start: 20150113, end: 20150113
  9. CEFMETAZOLE SODIUM [Concomitant]
     Active Substance: CEFMETAZOLE SODIUM
     Dosage: 1 G, UNK
     Route: 051
     Dates: start: 20141210, end: 20141210
  10. SERENACE [Concomitant]
     Active Substance: HALOPERIDOL
     Dosage: 5 MG, UNK
     Route: 051
     Dates: start: 20141212, end: 20141213
  11. METHADONE [Suspect]
     Active Substance: METHADONE HYDROCHLORIDE
     Dosage: (85 MG DAILY DOSE)
     Route: 048
     Dates: start: 20141229, end: 20150105
  12. ADONA [Concomitant]
     Active Substance: CARBAZOCHROME SODIUM SULFONATE
     Dosage: 90 MG
     Route: 048
     Dates: start: 20150316, end: 20150616
  13. LYRICA [Concomitant]
     Active Substance: PREGABALIN
     Dosage: 25 MG, UNK
     Route: 048
     Dates: start: 20150324, end: 20150616
  14. LASIX [Concomitant]
     Active Substance: FUROSEMIDE
     Dosage: 40 MG, UNK
     Route: 048
     Dates: start: 20141018, end: 20150220
  15. FUROSEMIDE. [Concomitant]
     Active Substance: FUROSEMIDE
     Dosage: 10 MG, UNK
     Route: 048
     Dates: start: 20150603, end: 20150612
  16. MORPHINE HYDROCHLORIDE [Concomitant]
     Active Substance: MORPHINE HYDROCHLORIDE
     Dosage: 200 MG, UNK
     Route: 051
     Dates: start: 20150618, end: 20150620
  17. METHADONE [Suspect]
     Active Substance: METHADONE HYDROCHLORIDE
     Dosage: (55 MG DAILY DOSE)
     Route: 048
     Dates: start: 20141209, end: 20141222
  18. METHADONE [Suspect]
     Active Substance: METHADONE HYDROCHLORIDE
     Dosage: (70 MG DAILY DOSE)
     Route: 048
     Dates: start: 20141222, end: 20141229
  19. METHADONE [Suspect]
     Active Substance: METHADONE HYDROCHLORIDE
     Dosage: (205 MG DAILY DOSE)
     Route: 048
     Dates: start: 20150512, end: 20150526
  20. METHADONE [Suspect]
     Active Substance: METHADONE HYDROCHLORIDE
     Dosage: (220 MG DAILY DOSE)
     Route: 048
     Dates: start: 20150527, end: 20150616
  21. PHENOL. [Concomitant]
     Active Substance: PHENOL
     Dosage: 0.3 ML, UNK
     Route: 051
     Dates: start: 20150121, end: 20150121
  22. PHENOL. [Concomitant]
     Active Substance: PHENOL
     Dosage: 0.3 ML, UNK
     Route: 051
     Dates: start: 20150126, end: 20150126
  23. PHENOL. [Concomitant]
     Active Substance: PHENOL
     Dosage: 0.3 ML, UNK
     Route: 051
     Dates: start: 20150128, end: 20150128
  24. METHADONE [Suspect]
     Active Substance: METHADONE HYDROCHLORIDE
     Dosage: (160 MG DAILY DOSE)
     Route: 048
     Dates: start: 20150202, end: 20150209
  25. METHADONE [Suspect]
     Active Substance: METHADONE HYDROCHLORIDE
     Dosage: (175 MG DAILY DOSE)
     Route: 048
     Dates: start: 20150209, end: 20150216
  26. ABSTRAL [Concomitant]
     Active Substance: FENTANYL CITRATE
     Dosage: UNK
  27. LANSOPRAZOLE. [Concomitant]
     Active Substance: LANSOPRAZOLE
     Dosage: 30 MG, UNK
     Route: 048
     Dates: start: 20140813, end: 20150616
  28. ADONA [Concomitant]
     Active Substance: CARBAZOCHROME SODIUM SULFONATE
     Indication: PRODUCT USED FOR UNKNOWN INDICATION
     Dosage: 90 MG
     Route: 048
     Dates: start: 20140813, end: 20150128
  29. CALONAL [Concomitant]
     Active Substance: ACETAMINOPHEN
     Dosage: 800 MG, UNK
     Route: 048
     Dates: start: 20141213, end: 20150616
  30. LYRICA [Concomitant]
     Active Substance: PREGABALIN
     Dosage: 50 MG, UNK
     Route: 048
     Dates: start: 20150213, end: 20150323
  31. BIO-THREE [Concomitant]
     Active Substance: HERBALS
     Dosage: 6 DF, UNK
     Route: 048
     Dates: start: 20150312, end: 20150314
  32. MORPHINE HYDROCHLORIDE [Concomitant]
     Active Substance: MORPHINE HYDROCHLORIDE
     Dosage: 50 MG, UNK
     Route: 051
     Dates: start: 20150616, end: 20150617
  33. METHADONE [Suspect]
     Active Substance: METHADONE HYDROCHLORIDE
     Indication: CANCER PAIN
     Dosage: 15 MG (45 MG DAILY DOSE)
     Route: 048
     Dates: start: 20141202, end: 20141208
  34. LOXOPROFEN [Concomitant]
     Active Substance: LOXOPROFEN
     Indication: ANALGESIC THERAPY
     Dosage: 180 MG, UNK
     Route: 048
     Dates: start: 20140813, end: 20141212
  35. LOXOPROFEN [Concomitant]
     Active Substance: LOXOPROFEN
     Dosage: 120 MG, UNK
     Route: 048
     Dates: start: 20141213, end: 20150616
  36. LYRICA [Concomitant]
     Active Substance: PREGABALIN
     Dosage: 100 MG, UNK
     Route: 048
     Dates: start: 20140911, end: 20140912
  37. FUROSEMIDE. [Concomitant]
     Active Substance: FUROSEMIDE
     Dosage: 20 MG, UNK
     Route: 048
     Dates: start: 20150328, end: 20150403
  38. METHADONE [Suspect]
     Active Substance: METHADONE HYDROCHLORIDE
     Dosage: (130 MG DAILY DOSE)
     Route: 048
     Dates: start: 20150119, end: 20150126
  39. MORPHINE HYDROCHLORIDE [Concomitant]
     Active Substance: MORPHINE HYDROCHLORIDE
     Dosage: 100 MG, UNK
     Route: 051
     Dates: start: 20150617, end: 20150618
  40. ABSTRAL [Concomitant]
     Active Substance: FENTANYL CITRATE
     Indication: ANALGESIC THERAPY
     Dosage: 100 - 400 ?G, PRN
     Route: 060
     Dates: start: 20141201
  41. LYRICA [Concomitant]
     Active Substance: PREGABALIN
     Dosage: 100 MG, UNK
     Route: 048
     Dates: start: 20141016, end: 20150212
  42. PREDONINE [Concomitant]
     Active Substance: PREDNISOLONE\PREDNISOLONE ACETATE\PREDNISOLONE SODIUM SUCCINATE
     Dosage: 10 MG, UNK
     Route: 048
     Dates: start: 20150318, end: 20150616
  43. DOMPERIDONE [Concomitant]
     Active Substance: DOMPERIDONE
     Dosage: 30 MG, UNK
     Route: 048
     Dates: start: 20150428, end: 20150512
  44. METHADONE [Suspect]
     Active Substance: METHADONE HYDROCHLORIDE
     Dosage: (100 MG DAILY DOSE)
     Route: 048
     Dates: start: 20150105, end: 20150112
  45. METHADONE [Suspect]
     Active Substance: METHADONE HYDROCHLORIDE
     Dosage: (145 MG DAILY DOSE)
     Route: 048
     Dates: start: 20150126, end: 20150202
  46. TRANSAMIN [Concomitant]
     Active Substance: TRANEXAMIC ACID
     Indication: PRODUCT USED FOR UNKNOWN INDICATION
     Dosage: 750 MG, UNK
     Route: 048
     Dates: start: 20140813, end: 20150128
  47. CALONAL [Concomitant]
     Active Substance: ACETAMINOPHEN
     Indication: ANALGESIC THERAPY
     Dosage: 1200 MG, UNK
     Route: 048
     Dates: start: 20140917, end: 20141212
  48. LYRICA [Concomitant]
     Active Substance: PREGABALIN
     Indication: ANALGESIC THERAPY
     Dosage: 50 MG, UNK
     Route: 048
     Dates: start: 20140909, end: 20140920
  49. LYRICA [Concomitant]
     Active Substance: PREGABALIN
     Dosage: 150 MG, UNK
     Route: 048
     Dates: start: 20140913, end: 20141015
  50. PHENOL. [Concomitant]
     Active Substance: PHENOL
     Dosage: 0.6 ML, UNK
     Route: 051
     Dates: start: 20150120, end: 20150120
  51. CEFAZOLIN SODIUM. [Concomitant]
     Active Substance: CEFAZOLIN SODIUM
     Dosage: 2 G, UNK
     Route: 051
     Dates: start: 20141217, end: 20141218

REACTIONS (2)
  - Cervix carcinoma [Fatal]
  - Electrocardiogram QT prolonged [Recovering/Resolving]

NARRATIVE: CASE EVENT DATE: 20150220
